FAERS Safety Report 6413130-X (Version None)
Quarter: 2009Q4

REPORT INFORMATION
  Report Type: 
  Country: None (occurrence: None)
  Receive Date: 20091022
  Receipt Date: 20091022
  Transmission Date: 20100525
  Serious: Yes (Hospitalization)
  Sender: FDA-Public Use
  Company Number: None

PATIENT
  Age: 63 Year
  Sex: Male

DRUGS (1)
  1. CEPHALEXIN [Suspect]
     Indication: CELLULITIS
     Dosage: 500MG QID PO
     Route: 048
     Dates: start: 20090928, end: 20091001

REACTIONS (3)
  - DIARRHOEA [None]
  - NO THERAPEUTIC RESPONSE [None]
  - RASH PRURITIC [None]
